FAERS Safety Report 6796252-3 (Version None)
Quarter: 2010Q2

REPORT INFORMATION
  Report Type: 
  Country: None (occurrence: None)
  Receive Date: 20100625
  Receipt Date: 20100617
  Transmission Date: 20101027
  Serious: Yes (Hospitalization, Other)
  Sender: FDA-Public Use
  Company Number: CA-ABBOTT-10P-028-0652581-00

PATIENT
  Sex: Female
  Weight: 57.204 kg

DRUGS (3)
  1. HUMIRA [Suspect]
     Indication: PSORIASIS
     Route: 058
     Dates: end: 20091101
  2. HUMIRA [Suspect]
     Dosage: LOADING DOSE
     Route: 058
     Dates: start: 20100517, end: 20100517
  3. HUMIRA [Suspect]
     Route: 058

REACTIONS (4)
  - DRUG INEFFECTIVE [None]
  - INFECTION [None]
  - POST PROCEDURAL HAEMORRHAGE [None]
  - TONSILLITIS [None]
